FAERS Safety Report 10333594 (Version 4)
Quarter: 2014Q4

REPORT INFORMATION
  Report Type: Report from Study
  Country: US (occurrence: US)
  Receive Date: 20140723
  Receipt Date: 20141211
  Transmission Date: 20150528
  Serious: Yes (Hospitalization)
  Sender: FDA-Public Use
  Company Number: US-AMGEN-USACT2014054725

PATIENT
  Age: 56 Year
  Sex: Female
  Weight: 103.8 kg

DRUGS (27)
  1. TORADOL [Concomitant]
     Active Substance: KETOROLAC TROMETHAMINE
     Dosage: 30 MG, UNK
     Route: 042
     Dates: start: 20140623, end: 20140623
  2. LOTRIMIN                           /00212501/ [Concomitant]
     Dosage: 1 UNK, UNK
     Route: 061
     Dates: start: 20140502
  3. DOCETAXEL. [Concomitant]
     Active Substance: DOCETAXEL
     Dosage: 150 MG, UNK
     Dates: start: 20140425
  4. LORAZEPAM. [Concomitant]
     Active Substance: LORAZEPAM
     Dosage: 2 MG, UNK
     Route: 048
     Dates: start: 20140521
  5. LOMOTIL [Concomitant]
     Active Substance: ATROPINE SULFATE\DIPHENOXYLATE HYDROCHLORIDE
     Dosage: 2.5 MG, UNK
     Route: 048
     Dates: start: 20140429
  6. PROTONIX [Concomitant]
     Active Substance: PANTOPRAZOLE SODIUM
     Dosage: 40 MG, UNK
     Route: 048
     Dates: start: 20140429
  7. CHOLESTYRAMINE. [Concomitant]
     Active Substance: CHOLESTYRAMINE
     Dosage: 4 G, UNK
     Route: 048
     Dates: start: 20140521
  8. VITAMIN D3 [Concomitant]
     Active Substance: CHOLECALCIFEROL
     Dosage: 4000 UNK, UNK
     Route: 048
     Dates: start: 20131231
  9. BENADRYL [Concomitant]
     Active Substance: DIPHENHYDRAMINE HYDROCHLORIDE
     Dosage: 25 MG, UNK
     Route: 048
     Dates: start: 20140425, end: 20140425
  10. FLUCONAZOLE. [Concomitant]
     Active Substance: FLUCONAZOLE
     Dosage: 100 - 200 MG, UNK
     Dates: start: 20140501, end: 20140718
  11. TUMS                               /00193601/ [Concomitant]
     Active Substance: CALCIUM CARBONATE\MAGNESIUM CARBONATE\MAGNESIUM TRISILICATE
     Dosage: 8 UNK, UNK
     Route: 048
     Dates: start: 20140429
  12. LOVENOX [Concomitant]
     Active Substance: ENOXAPARIN SODIUM
     Dosage: 40 MG, UNK
     Route: 058
     Dates: start: 20140502
  13. CARBOPLATIN. [Concomitant]
     Active Substance: CARBOPLATIN
     Dosage: 820-900 MG, UNK
     Dates: start: 20140425
  14. PARACETAMOL [Concomitant]
     Active Substance: ACETAMINOPHEN
     Dosage: 650 MG, UNK
     Route: 048
     Dates: start: 20140425
  15. NORMAL SALINE [Concomitant]
     Active Substance: SODIUM CHLORIDE
     Dosage: 1000 UNK, UNK
     Route: 042
     Dates: start: 20140429
  16. IMODIUM [Concomitant]
     Active Substance: LOPERAMIDE HYDROCHLORIDE
     Dosage: 16 MG, UNK
     Route: 048
     Dates: start: 20140502, end: 20140507
  17. HYDROCODONE [Concomitant]
     Active Substance: HYDROCODONE
     Dosage: 2 UNK, UNK
     Route: 048
     Dates: start: 20140518, end: 20140519
  18. PEGFILGRASTIM [Suspect]
     Active Substance: PEGFILGRASTIM
     Indication: BONE PAIN
     Dosage: 6 MG, UNK
     Route: 065
     Dates: start: 20140426
  19. ZANTAC [Concomitant]
     Active Substance: RANITIDINE HYDROCHLORIDE
     Dosage: 50 MG, UNK
     Route: 042
     Dates: start: 20140623, end: 20140623
  20. MIRALAX [Concomitant]
     Active Substance: POLYETHYLENE GLYCOL 3350
     Dosage: 17 G, UNK
     Route: 048
     Dates: start: 20140425, end: 20140426
  21. TRASTUZUMAB [Concomitant]
     Active Substance: TRASTUZUMAB
     Dosage: 189-798 MG, UNK
     Dates: start: 20140425
  22. ALEVE [Concomitant]
     Active Substance: NAPROXEN SODIUM
     Dosage: 440 MG, UNK
     Route: 048
     Dates: start: 20140518, end: 20140519
  23. DILAUDID [Concomitant]
     Active Substance: HYDROMORPHONE HYDROCHLORIDE
     Dosage: 1- 12 MG, UNK
     Route: 042
     Dates: start: 20140520, end: 20140626
  24. ZOFRAN                             /00955301/ [Concomitant]
     Active Substance: ONDANSETRON HYDROCHLORIDE
     Dosage: 8 -16 MG, UNK
     Route: 042
     Dates: start: 20140425
  25. DECADRON [Concomitant]
     Active Substance: DEXAMETHASONE
     Dosage: 8 -20 MG, UNK
     Route: 042
     Dates: start: 20140425, end: 20140429
  26. EMLA [Concomitant]
     Active Substance: LIDOCAINE\PRILOCAINE
     Dosage: 2.4 UNK, UNK
     Route: 061
     Dates: start: 20140425
  27. COMPAZINE [Concomitant]
     Active Substance: PROCHLORPERAZINE MALEATE
     Dosage: 40 MG, UNK
     Route: 048
     Dates: start: 20140425

REACTIONS (1)
  - Dehydration [Recovered/Resolved]

NARRATIVE: CASE EVENT DATE: 20140714
